FAERS Safety Report 4810103-5 (Version None)
Quarter: 2005Q4

REPORT INFORMATION
  Report Type: 
  Country: None (occurrence: None)
  Receive Date: 20051026
  Receipt Date: 20051017
  Transmission Date: 20060501
  Serious: Yes (Other)
  Sender: FDA-Public Use
  Company Number: 2005AP05435

PATIENT
  Age: 58 Year
  Sex: Male

DRUGS (4)
  1. OMEPRAL [Suspect]
     Route: 048
  2. ASPIRIN [Concomitant]
  3. LIPITOR [Concomitant]
     Route: 048
  4. INSULIN [Concomitant]

REACTIONS (1)
  - PLATELET AGGREGATION [None]
